FAERS Safety Report 23365462 (Version 6)
Quarter: 2024Q1

REPORT INFORMATION
  Report Type: Report from Study
  Country: IL (occurrence: IL)
  Receive Date: 20240104
  Receipt Date: 20240307
  Transmission Date: 20240410
  Serious: Yes (Hospitalization, Other)
  Sender: FDA-Public Use
  Company Number: IL-TAKEDA-2024TUS000450

PATIENT
  Age: 48 Year
  Sex: Male
  Weight: 69 kg

DRUGS (5)
  1. VELAGLUCERASE ALFA [Suspect]
     Active Substance: VELAGLUCERASE ALFA
     Indication: Gaucher^s disease
     Dosage: UNK
     Route: 065
  2. CEFTRIAXONE [Concomitant]
     Active Substance: CEFTRIAXONE\CEFTRIAXONE SODIUM
     Indication: Infection
     Dosage: UNK UNK, QD
     Route: 065
     Dates: start: 20230919, end: 20231006
  3. PENICILLIN G [Concomitant]
     Active Substance: PENICILLIN G
     Indication: Infection
     Dosage: UNK UNK, QD
     Route: 065
     Dates: start: 20231006, end: 202311
  4. AMOXICILLIN [Concomitant]
     Active Substance: AMOXICILLIN
     Indication: Infection
     Dosage: 1000 MILLIGRAM, TID
     Route: 065
     Dates: start: 202311
  5. ELIQUIS [Concomitant]
     Active Substance: APIXABAN
     Dosage: 2.5 MILLIGRAM, BID
     Route: 065
     Dates: start: 20231108

REACTIONS (2)
  - Osteonecrosis [Recovered/Resolved]
  - Femur fracture [Recovered/Resolved]

NARRATIVE: CASE EVENT DATE: 20230901
